FAERS Safety Report 25113448 (Version 1)
Quarter: 2025Q1

REPORT INFORMATION
  Report Type: Spontaneous
  Country: US (occurrence: None)
  Receive Date: 20250322
  Receipt Date: 20250322
  Transmission Date: 20250408
  Serious: Yes (Disabling)
  Sender: FDA-CTU
  Company Number: None

PATIENT
  Age: 72 Year
  Sex: Female
  Weight: 61.2 kg

DRUGS (4)
  1. GABAPENTIN [Suspect]
     Active Substance: GABAPENTIN
     Indication: Anxiety
     Dosage: FREQUENCY : EVERY 6 HOURS;?
     Route: 048
  2. GABAPENTIN [Suspect]
     Active Substance: GABAPENTIN
     Indication: Tremor
  3. AMLODIPINE BESYLATE [Concomitant]
     Active Substance: AMLODIPINE BESYLATE
  4. METOPROLOL SUCCINCT [Concomitant]
     Dosage: FREQUENCY : DAILY;?

REACTIONS (4)
  - Withdrawal syndrome [None]
  - Muscular weakness [None]
  - Vision blurred [None]
  - Nystagmus [None]

NARRATIVE: CASE EVENT DATE: 20240501
